FAERS Safety Report 10067512 (Version 1)
Quarter: 2014Q2

REPORT INFORMATION
  Report Type: Spontaneous
  Country: US (occurrence: None)
  Receive Date: 20140408
  Receipt Date: 20140408
  Transmission Date: 20141212
  Serious: Yes (Other)
  Sender: FDA-Public Use
  Company Number: None

PATIENT
  Age: 46 Year
  Sex: Female
  Weight: 78.47 kg

DRUGS (2)
  1. ISONIAZID [Suspect]
     Indication: LATENT TUBERCULOSIS
     Route: 048
     Dates: start: 20140106, end: 20140331
  2. DEPO PROVERA [Concomitant]

REACTIONS (6)
  - Jaundice [None]
  - Chromaturia [None]
  - Weight decreased [None]
  - Abdominal pain [None]
  - Fatigue [None]
  - Pruritus [None]
